FAERS Safety Report 16046827 (Version 2)
Quarter: 2019Q2

REPORT INFORMATION
  Report Type: Spontaneous
  Country: US (occurrence: US)
  Receive Date: 20190307
  Receipt Date: 20190424
  Transmission Date: 20190711
  Serious: No
  Sender: FDA-Public Use
  Company Number: US-PFIZER INC-2019086978

PATIENT
  Sex: Female

DRUGS (1)
  1. DILANTIN [Suspect]
     Active Substance: PHENYTOIN
     Indication: LOSS OF CONSCIOUSNESS
     Dosage: 3 DF, 1X/DAY
     Route: 048
     Dates: start: 1969

REACTIONS (6)
  - Drug effective for unapproved indication [Unknown]
  - Intentional product misuse [Unknown]
  - Poor quality product administered [Unknown]
  - Product physical issue [Unknown]
  - Somnolence [Unknown]
  - Oropharyngeal pain [Unknown]
